FAERS Safety Report 14639516 (Version 1)
Quarter: 2018Q1

REPORT INFORMATION
  Report Type: Spontaneous
  Country: FR (occurrence: FR)
  Receive Date: 20180315
  Receipt Date: 20180315
  Transmission Date: 20180509
  Serious: Yes (Other)
  Sender: FDA-Public Use
  Company Number: FR-MERCK KGAA-2043786

PATIENT
  Age: 66 Year
  Sex: Female

DRUGS (2)
  1. LEVOTHYROX NF [Suspect]
     Active Substance: LEVOTHYROXINE SODIUM
     Dates: start: 201705
  2. NOVOTHYROX [Suspect]
     Active Substance: LEVOTHYROXINE SODIUM
     Indication: PRODUCT USED FOR UNKNOWN INDICATION
     Dates: start: 201704

REACTIONS (17)
  - Hypothyroidism [None]
  - Balance disorder [None]
  - Weight increased [None]
  - Hot flush [None]
  - Hyperthyroidism [None]
  - Back pain [None]
  - Pulmonary oedema [None]
  - Dizziness [None]
  - Insomnia [None]
  - Chest pain [None]
  - Dyspnoea [None]
  - Dyspepsia [None]
  - Loss of personal independence in daily activities [None]
  - Infarction [None]
  - Myalgia [None]
  - Blood thyroid stimulating hormone increased [None]
  - Anxiety [None]

NARRATIVE: CASE EVENT DATE: 201707
